FAERS Safety Report 11245570 (Version 1)
Quarter: 2015Q3

REPORT INFORMATION
  Report Type: Spontaneous
  Country: GB (occurrence: GB)
  Receive Date: 20150707
  Receipt Date: 20150707
  Transmission Date: 20151125
  Serious: Yes (Other)
  Sender: FDA-Public Use
  Company Number: PHHY2015GB077404

PATIENT
  Age: 58 Year
  Sex: Male
  Weight: 73.93 kg

DRUGS (1)
  1. METRONIDAZOLE. [Suspect]
     Active Substance: METRONIDAZOLE
     Indication: GINGIVITIS
     Route: 048
     Dates: start: 20150529, end: 20150604

REACTIONS (12)
  - Urethral haemorrhage [Recovering/Resolving]
  - Prostatitis [Recovering/Resolving]
  - Pain [Recovering/Resolving]
  - Pyrexia [Recovering/Resolving]
  - Inflammation [Recovering/Resolving]
  - Prostatic haemorrhage [Recovering/Resolving]
  - Haemorrhage urinary tract [Recovering/Resolving]
  - Anuria [Recovering/Resolving]
  - Urethritis noninfective [Recovering/Resolving]
  - Fatigue [Recovering/Resolving]
  - Genitourinary tract gonococcal infection [Recovering/Resolving]
  - Dysuria [Recovering/Resolving]

NARRATIVE: CASE EVENT DATE: 20150606
